FAERS Safety Report 14610381 (Version 2)
Quarter: 2018Q2

REPORT INFORMATION
  Report Type: Report from Study
  Country: DE (occurrence: DE)
  Receive Date: 20180307
  Receipt Date: 20180427
  Transmission Date: 20180711
  Serious: Yes (Hospitalization)
  Sender: FDA-Public Use
  Company Number: DE-TEVA-2018-DE-865062

PATIENT
  Age: 63 Year
  Sex: Female
  Weight: 47 kg

DRUGS (4)
  1. COPAXONE [Suspect]
     Active Substance: GLATIRAMER ACETATE
     Dosage: 20 MILLIGRAM DAILY;
     Dates: start: 20130207
  2. UBRETID [Suspect]
     Active Substance: DISTIGMINE BROMIDE
     Dosage: 1-0-1
  3. CARBAMAZEPIN [Suspect]
     Active Substance: CARBAMAZEPINE
     Dosage: 1-1-1
  4. COPAXONE [Suspect]
     Active Substance: GLATIRAMER ACETATE
     Indication: MULTIPLE SCLEROSIS
     Dosage: 20 MILLIGRAM DAILY;
     Dates: start: 200807, end: 201201

REACTIONS (2)
  - Subileus [Recovered/Resolved]
  - Enteritis [Recovered/Resolved]

NARRATIVE: CASE EVENT DATE: 201711
